FAERS Safety Report 7137803-9 (Version None)
Quarter: 2010Q4

REPORT INFORMATION
  Report Type: 
  Country: None (occurrence: None)
  Receive Date: 20101206
  Receipt Date: 20101122
  Transmission Date: 20110411
  Serious: Yes (Other)
  Sender: FDA-Public Use
  Company Number: PHHY2010CA76848

PATIENT
  Sex: Male

DRUGS (3)
  1. ALISKIREN ALI+ [Suspect]
     Dosage: ONE TABLET, DAILY
     Route: 048
     Dates: start: 20100629, end: 20100730
  2. CALCIUM CHANNEL BLOCKERS [Concomitant]
  3. ANGIOTENSIN II ANTAGONISTS [Concomitant]

REACTIONS (7)
  - ASTHENIA [None]
  - BLOOD PRESSURE DECREASED [None]
  - DECREASED APPETITE [None]
  - DIARRHOEA [None]
  - DYSGRAPHIA [None]
  - HYPERSENSITIVITY [None]
  - URTICARIA [None]
